FAERS Safety Report 7719037-X (Version None)
Quarter: 2011Q3

REPORT INFORMATION
  Report Type: 
  Country: None (occurrence: None)
  Receive Date: 20110830
  Receipt Date: 20110826
  Transmission Date: 20111222
  Serious: Yes (Hospitalization)
  Sender: FDA-Public Use
  Company Number: ES-PFIZER INC-2011165119

PATIENT
  Age: 92 Year
  Sex: Female

DRUGS (6)
  1. SUMIAL [Concomitant]
     Dosage: 10 MG, UNK
     Route: 048
     Dates: end: 20090309
  2. METFORMIN [Concomitant]
     Indication: DIABETES MELLITUS
     Dosage: UNK
     Route: 048
     Dates: start: 20030101, end: 20090309
  3. ALDACTONE [Suspect]
     Indication: CARDIAC FAILURE
     Dosage: 100 MG, UNK
     Route: 048
     Dates: end: 20090309
  4. FUROSEMIDE [Interacting]
     Indication: CARDIAC FAILURE
     Dosage: 40 MG, UNK
     Route: 048
  5. ASPIRIN [Interacting]
     Indication: PROPHYLAXIS
     Dosage: 150 MG, UNK
     Route: 048
  6. OMEPRAZOLE [Concomitant]
     Indication: PROPHYLAXIS
     Route: 048

REACTIONS (3)
  - DRUG INTERACTION [None]
  - HYPERKALAEMIA [None]
  - RENAL FAILURE ACUTE [None]
